FAERS Safety Report 20222317 (Version 1)
Quarter: 2021Q4

REPORT INFORMATION
  Report Type: Spontaneous
  Country: US (occurrence: None)
  Receive Date: 20211223
  Receipt Date: 20211223
  Transmission Date: 20220303
  Serious: Yes (Disabling)
  Sender: FDA-Public Use
  Company Number: None

PATIENT
  Sex: Male

DRUGS (1)
  1. PHEXXI [Suspect]
     Active Substance: CITRIC ACID MONOHYDRATE\LACTIC ACID, L-\POTASSIUM BITARTRATE
     Indication: Contraception
     Dosage: OTHER QUANTITY : 1 INSERTION;?OTHER FREQUENCY : BEFORE SEX;?
     Route: 067

REACTIONS (5)
  - Penile burning sensation [None]
  - Chemical burn of genitalia [None]
  - Scar [None]
  - Penile pain [None]
  - Contraception [None]

NARRATIVE: CASE EVENT DATE: 20211110
